FAERS Safety Report 5387804-6 (Version None)
Quarter: 2007Q3

REPORT INFORMATION
  Report Type: 
  Country: None (occurrence: None)
  Receive Date: 20070716
  Receipt Date: 20060614
  Transmission Date: 20080115
  Serious: No
  Sender: FDA-Public Use
  Company Number: A0608804A

PATIENT
  Age: 56 Year
  Sex: Male

DRUGS (3)
  1. NICORETTE [Suspect]
  2. NICODERM CQ [Suspect]
     Dates: start: 20060611
  3. NICODERM CQ [Suspect]

REACTIONS (6)
  - ABNORMAL DREAMS [None]
  - APPLICATION SITE ERYTHEMA [None]
  - HEART RATE INCREASED [None]
  - INTENTIONAL DRUG MISUSE [None]
  - NICOTINE DEPENDENCE [None]
  - PSYCHOMOTOR HYPERACTIVITY [None]
